FAERS Safety Report 23365460 (Version 1)
Quarter: 2024Q1

REPORT INFORMATION
  Report Type: Spontaneous
  Country: US (occurrence: None)
  Receive Date: 20240103
  Receipt Date: 20240103
  Transmission Date: 20240410
  Serious: Yes (Death)
  Sender: FDA-Public Use
  Company Number: None

PATIENT
  Age: 80 Year
  Sex: Male
  Weight: 63 kg

DRUGS (1)
  1. LYRICA [Suspect]
     Active Substance: PREGABALIN
     Indication: Pain
     Dates: start: 20220416, end: 20220417

REACTIONS (8)
  - Decubitus ulcer [None]
  - Infection [None]
  - Somnolence [None]
  - Acidosis [None]
  - Somnolence [None]
  - Respiratory depression [None]
  - Somnolence [None]
  - Coma [None]

NARRATIVE: CASE EVENT DATE: 20220417
